FAERS Safety Report 7899995-3 (Version None)
Quarter: 2011Q4

REPORT INFORMATION
  Report Type: 
  Country: None (occurrence: None)
  Receive Date: 20111107
  Receipt Date: 20111020
  Transmission Date: 20120403
  Serious: No
  Sender: FDA-Public Use
  Company Number: US-AMGEN-USASP2011045762

PATIENT
  Age: 65 Year
  Sex: Female

DRUGS (1)
  1. ENBREL [Suspect]
     Indication: RHEUMATOID ARTHRITIS
     Dosage: 50 MG, QWK
     Dates: start: 20091001

REACTIONS (12)
  - NASAL CONGESTION [None]
  - NODULE [None]
  - FINGER DEFORMITY [None]
  - INJECTION SITE PAIN [None]
  - KIDNEY INFECTION [None]
  - CYSTITIS [None]
  - RHINORRHOEA [None]
  - INJECTION SITE PRURITUS [None]
  - INJECTION SITE ERYTHEMA [None]
  - NERVE COMPRESSION [None]
  - MUSCULOSKELETAL STIFFNESS [None]
  - LATEX ALLERGY [None]
